FAERS Safety Report 5178250-9 (Version None)
Quarter: 2006Q4

REPORT INFORMATION
  Report Type: 
  Country: None (occurrence: None)
  Receive Date: 20061218
  Receipt Date: 20060808
  Transmission Date: 20070319
  Serious: No
  Sender: FDA-Public Use
  Company Number: US-AMGEN-KDL189404

PATIENT
  Sex: Female

DRUGS (1)
  1. ENBREL [Suspect]
     Indication: RHEUMATOID ARTHRITIS
     Route: 058
     Dates: start: 20060601

REACTIONS (14)
  - BLOOD TEST ABNORMAL [None]
  - DRY SKIN [None]
  - DYSPHAGIA [None]
  - HEPATIC ENZYME ABNORMAL [None]
  - LIVER DISORDER [None]
  - NASOPHARYNGITIS [None]
  - OEDEMA MOUTH [None]
  - PHARYNGEAL OEDEMA [None]
  - PHARYNGOLARYNGEAL PAIN [None]
  - SENSITIVITY OF TEETH [None]
  - SINUS CONGESTION [None]
  - STOMATITIS [None]
  - THROAT IRRITATION [None]
  - TOOTHACHE [None]
